FAERS Safety Report 16741187 (Version 2)
Quarter: 2019Q3

REPORT INFORMATION
  Report Type: Spontaneous
  Country: US (occurrence: US)
  Receive Date: 20190826
  Receipt Date: 20190909
  Transmission Date: 20191005
  Serious: Yes (Other)
  Sender: FDA-Public Use
  Company Number: US-AMGEN-USASP2019134945

PATIENT

DRUGS (5)
  1. ADRIAMYCIN [Concomitant]
     Active Substance: DOXORUBICIN HYDROCHLORIDE
     Indication: TRIPLE NEGATIVE BREAST CANCER
     Dosage: UNK, Q2WK, AC (DOXORUBICIN/CYCLOPHOSPHAMIDE 60/600 MG/M2) Q2WK X 4 DOSES
     Route: 042
  2. TALIMOGENE LAHERPAREPVEC [Suspect]
     Active Substance: TALIMOGENE LAHERPAREPVEC
     Dosage: UNK UNK, Q2WK (10^6 PFU 1ST DOSE THEN 10^8 PFU X4 DOSES)
     Route: 065
  3. TALIMOGENE LAHERPAREPVEC [Suspect]
     Active Substance: TALIMOGENE LAHERPAREPVEC
     Indication: TRIPLE NEGATIVE BREAST CANCER
     Dosage: UNK UNK, Q2WK (10^6 PFU X 5 DOSES)
     Route: 065
  4. PACLITAXEL. [Concomitant]
     Active Substance: PACLITAXEL
     Indication: TRIPLE NEGATIVE BREAST CANCER
     Dosage: 80 MILLIGRAM/SQ. METER, QWK
     Route: 042
  5. CYCLOPHOSPHAMIDE. [Concomitant]
     Active Substance: CYCLOPHOSPHAMIDE
     Indication: TRIPLE NEGATIVE BREAST CANCER
     Dosage: UNK, Q2WK, AC (DOXORUBICIN/CYCLOPHOSPHAMIDE 60/600 MG/M2) Q2WK X 4 DOSES
     Route: 042

REACTIONS (13)
  - Lymphopenia [Unknown]
  - Pyrexia [Unknown]
  - Injection site pain [Unknown]
  - Anaemia [Unknown]
  - Embolism [Unknown]
  - Bradycardia [Unknown]
  - Haematoma [Unknown]
  - Neuropathy peripheral [Unknown]
  - Off label use [Unknown]
  - Chills [Unknown]
  - Nausea [Unknown]
  - Fatigue [Unknown]
  - Infusion related reaction [Unknown]
